FAERS Safety Report 9136705 (Version 1)
Quarter: 2013Q1

REPORT INFORMATION
  Report Type: Spontaneous
  Country: US (occurrence: US)
  Receive Date: 20130304
  Receipt Date: 20130304
  Transmission Date: 20140127
  Serious: No
  Sender: FDA-Public Use
  Company Number: US-ABBOTT-12P-163-0910895-00

PATIENT
  Age: 55 None
  Sex: Male
  Weight: 95.34 kg

DRUGS (17)
  1. ANDROGEL 1% [Suspect]
     Indication: BLOOD TESTOSTERONE DECREASED
     Route: 061
     Dates: start: 201202
  2. ASPIRIN [Concomitant]
     Indication: CARDIAC DISORDER
  3. PLAVIX [Concomitant]
     Indication: CARDIAC DISORDER
  4. LISINOPRIL [Concomitant]
     Indication: PRODUCT USED FOR UNKNOWN INDICATION
  5. SIMVASTAIN [Concomitant]
     Indication: PRODUCT USED FOR UNKNOWN INDICATION
  6. CARTIA XT [Concomitant]
     Indication: CARDIAC DISORDER
  7. OXYCODONE [Concomitant]
     Indication: BACK PAIN
  8. OXYCODONE [Concomitant]
     Indication: PAIN IN EXTREMITY
  9. PRILOSEC [Concomitant]
     Indication: GASTROOESOPHAGEAL REFLUX DISEASE
  10. RESTASIS [Concomitant]
     Indication: DRY EYE
  11. COMBIVENT [Concomitant]
     Indication: CHRONIC OBSTRUCTIVE PULMONARY DISEASE
  12. ATROVENT [Concomitant]
     Indication: PRODUCT USED FOR UNKNOWN INDICATION
  13. MUCINEX [Concomitant]
     Indication: COUGH
  14. MUCINEX [Concomitant]
     Indication: PULMONARY CONGESTION
  15. BENZONATE [Concomitant]
     Indication: COUGH
  16. DILAUDID [Concomitant]
     Indication: PAIN
     Dosage: PAIN PUMP
  17. NASAL [Concomitant]
     Indication: RESPIRATION ABNORMAL
     Route: 045

REACTIONS (6)
  - Penis disorder [Not Recovered/Not Resolved]
  - Erection increased [Not Recovered/Not Resolved]
  - Groin pain [Not Recovered/Not Resolved]
  - Wrong technique in drug usage process [None]
  - Fatigue [Not Recovered/Not Resolved]
  - Scrotal oedema [Not Recovered/Not Resolved]
